FAERS Safety Report 25095941 (Version 3)
Quarter: 2025Q2

REPORT INFORMATION
  Report Type: Spontaneous
  Country: ES (occurrence: ES)
  Receive Date: 20250319
  Receipt Date: 20250613
  Transmission Date: 20250716
  Serious: Yes (Life-Threatening, Other)
  Sender: SANOFI AVENTIS
  Company Number: ES-SA-2025SA079365

PATIENT
  Age: 3 Month
  Sex: Male

DRUGS (17)
  1. MYOZYME [Suspect]
     Active Substance: ALGLUCOSIDASE ALFA
     Indication: Glycogen storage disease type II
     Dosage: 20 MG/KG, Q15D
     Route: 042
     Dates: start: 20230814, end: 20231018
  2. MYOZYME [Suspect]
     Active Substance: ALGLUCOSIDASE ALFA
     Dosage: 20 MG/KG, Q15D
     Route: 042
     Dates: start: 20231018, end: 20231118
  3. MYOZYME [Suspect]
     Active Substance: ALGLUCOSIDASE ALFA
     Dosage: 20 MG/KG, Q15D
     Route: 042
     Dates: start: 20231130, end: 20240801
  4. MYOZYME [Suspect]
     Active Substance: ALGLUCOSIDASE ALFA
     Route: 042
     Dates: start: 20250225
  5. MYOZYME [Suspect]
     Active Substance: ALGLUCOSIDASE ALFA
  6. DEXCHLORPHENIRAMINE [Concomitant]
     Active Substance: DEXCHLORPHENIRAMINE
     Indication: Premedication
  7. POLARAMINE [Concomitant]
     Active Substance: DEXCHLORPHENIRAMINE MALEATE
     Indication: Premedication
     Route: 058
     Dates: start: 20231103, end: 20231103
  8. POLARAMINE [Concomitant]
     Active Substance: DEXCHLORPHENIRAMINE MALEATE
     Route: 065
     Dates: start: 20231130
  9. RITUXIMAB [Concomitant]
     Active Substance: RITUXIMAB
     Indication: Premedication
     Dosage: 12.5 MG/KG (TOTAL 62.5 MG), QW
     Dates: start: 20230813, end: 20230903
  10. METHYLPREDNISOLONE [Concomitant]
     Active Substance: METHYLPREDNISOLONE
     Indication: Premedication
     Dosage: 10 MG, QW
     Route: 042
     Dates: start: 20230813, end: 20230903
  11. METHYLPREDNISOLONE [Concomitant]
     Active Substance: METHYLPREDNISOLONE
     Route: 042
     Dates: start: 20231103, end: 20231103
  12. METHYLPREDNISOLONE [Concomitant]
     Active Substance: METHYLPREDNISOLONE
     Route: 042
     Dates: start: 20231118, end: 20231118
  13. METHOTREXATE [Concomitant]
     Active Substance: METHOTREXATE
     Dosage: 0.4 MG/KG (2 MG), QD
     Route: 058
     Dates: start: 20230814, end: 20230816
  14. METHOTREXATE [Concomitant]
     Active Substance: METHOTREXATE
     Dosage: 0.4 MG/KG (2 MG), QD
     Route: 058
     Dates: start: 20230828, end: 20230830
  15. METHOTREXATE [Concomitant]
     Active Substance: METHOTREXATE
     Dosage: 0.4 MG/KG (2 MG), QD
     Route: 058
     Dates: start: 20231112, end: 20231114
  16. ACETAMINOPHEN [Concomitant]
     Active Substance: ACETAMINOPHEN
     Indication: Premedication
     Dosage: 40 MG, QW
     Route: 042
     Dates: start: 20230813, end: 20230903
  17. IMMUNE GLOBULIN NOS [Concomitant]
     Active Substance: IMMUNE GLOBULIN NOS
     Route: 042
     Dates: start: 20230812

REACTIONS (16)
  - Cardiac arrest [Recovering/Resolving]
  - Electrocardiogram ST segment elevation [Recovering/Resolving]
  - Hypoperfusion [Recovering/Resolving]
  - Hypotonia [Unknown]
  - Asthenia [Unknown]
  - Moaning [Unknown]
  - Rash erythematous [Unknown]
  - Papule [Unknown]
  - Irritability [Unknown]
  - Agitation [Unknown]
  - Tachycardia [Unknown]
  - Pallor [Unknown]
  - Hypotension [Unknown]
  - Heart rate increased [Unknown]
  - Wheezing [Unknown]
  - Hyperhidrosis [Unknown]

NARRATIVE: CASE EVENT DATE: 20231018
